FAERS Safety Report 4726497-5 (Version None)
Quarter: 2005Q3

REPORT INFORMATION
  Report Type: 
  Country: None (occurrence: None)
  Receive Date: 20050725
  Receipt Date: 20050506
  Transmission Date: 20060218
  Serious: No
  Sender: FDA-Public Use
  Company Number: USA050597508

PATIENT
  Age: 31 Year
  Sex: Female

DRUGS (6)
  1. CYMBALTA [Suspect]
     Indication: DEPRESSION
     Dosage: 60 MG
     Dates: start: 20050308
  2. STRATTERA [Suspect]
     Indication: ATTENTION DEFICIT/HYPERACTIVITY DISORDER
     Dosage: 80 MG
     Dates: start: 20050201
  3. LEXAPRO [Concomitant]
  4. NUVARING [Concomitant]
  5. ALLEGRA [Concomitant]
  6. NASONEX [Concomitant]

REACTIONS (11)
  - ALCOHOL INTERACTION [None]
  - ALOPECIA [None]
  - BLOOD PRESSURE DECREASED [None]
  - BLOOD PRESSURE INCREASED [None]
  - COLONOSCOPY [None]
  - DECREASED APPETITE [None]
  - DIARRHOEA [None]
  - HEART RATE INCREASED [None]
  - PRESCRIBED OVERDOSE [None]
  - TRICHORRHEXIS [None]
  - WEIGHT DECREASED [None]
